FAERS Safety Report 5020154-6 (Version None)
Quarter: 2006Q2

REPORT INFORMATION
  Report Type: 
  Country: None (occurrence: None)
  Receive Date: 20060602
  Receipt Date: 20060517
  Transmission Date: 20061013
  Serious: Yes (Other)
  Sender: FDA-Public Use
  Company Number: DE200605003972

PATIENT
  Age: 51 Year
  Sex: Male

DRUGS (2)
  1. CYMBALTA [Suspect]
     Indication: DRUG USE FOR UNKNOWN INDICATION
     Dosage: 60 MG DAILY (1/D)
     Dates: start: 20060517
  2. BISOPROLOL FUMARATE [Concomitant]

REACTIONS (1)
  - BLOOD PRESSURE SYSTOLIC DECREASED [None]
